FAERS Safety Report 9928659 (Version 1)
Quarter: 2014Q1

REPORT INFORMATION
  Report Type: Spontaneous
  Country: FI (occurrence: FI)
  Receive Date: 20140227
  Receipt Date: 20140227
  Transmission Date: 20141002
  Serious: Yes (Death, Hospitalization)
  Sender: FDA-Public Use
  Company Number: PHHY2014FI019911

PATIENT
  Age: 90 Year
  Sex: Female

DRUGS (2)
  1. BISOPROLOL [Suspect]
     Route: 042
  2. TEMAZEPAM [Suspect]

REACTIONS (5)
  - Toxicity to various agents [Fatal]
  - Arteriosclerosis [Fatal]
  - Subdural haemorrhage [Fatal]
  - Loss of consciousness [Recovering/Resolving]
  - Disorientation [Unknown]
